FAERS Safety Report 6708112-4 (Version None)
Quarter: 2010Q2

REPORT INFORMATION
  Report Type: 
  Country: None (occurrence: None)
  Receive Date: 20100503
  Receipt Date: 20090318
  Transmission Date: 20101027
  Serious: No
  Sender: FDA-Public Use
  Company Number: US-ASTRAZENECA-2009UW07031

PATIENT
  Age: 15797 Day
  Sex: Male
  Weight: 95.3 kg

DRUGS (1)
  1. NEXIUM [Suspect]
     Route: 048
     Dates: start: 20090317, end: 20090317

REACTIONS (4)
  - ABDOMINAL PAIN UPPER [None]
  - DRY MOUTH [None]
  - FLATULENCE [None]
  - NAUSEA [None]
